FAERS Safety Report 15253781 (Version 2)
Quarter: 2018Q3

REPORT INFORMATION
  Report Type: Spontaneous
  Country: US (occurrence: US)
  Receive Date: 20180808
  Receipt Date: 20180817
  Transmission Date: 20181010
  Serious: Yes (Other)
  Sender: FDA-Public Use
  Company Number: US-DRREDDYS-USA/USA/18/0102945

PATIENT
  Age: 72 Year
  Sex: Female

DRUGS (1)
  1. DOXORUBICIN HYDROCHLORIDE LIPOSOME INJECTION 20 MG/10 ML (2 MG/ML) AND [Suspect]
     Active Substance: DOXORUBICIN HYDROCHLORIDE
     Indication: METASTATIC NEOPLASM
     Route: 065

REACTIONS (12)
  - Diarrhoea [Unknown]
  - Adverse event [Unknown]
  - Hypomagnesaemia [Unknown]
  - Toxicity to various agents [Unknown]
  - Hypocalcaemia [Unknown]
  - Metastases to bone [Unknown]
  - Fatigue [Unknown]
  - Pancytopenia [Unknown]
  - Failure to thrive [Unknown]
  - Nausea [Unknown]
  - Hypophosphataemia [Unknown]
  - Hypoparathyroidism secondary [Unknown]
